FAERS Safety Report 16591449 (Version 2)
Quarter: 2019Q3

REPORT INFORMATION
  Report Type: Spontaneous
  Country: US (occurrence: US)
  Receive Date: 20190718
  Receipt Date: 20190723
  Transmission Date: 20191004
  Serious: No
  Sender: FDA-Public Use
  Company Number: US-PFIZER INC-2019306721

PATIENT
  Age: 67 Year
  Sex: Female

DRUGS (5)
  1. CORTAB [DIPYRIDAMOLE] [Suspect]
     Active Substance: DIPYRIDAMOLE
     Dosage: UNK
  2. TRAMADOL HYDROCHLORIDE. [Suspect]
     Active Substance: TRAMADOL HYDROCHLORIDE
     Dosage: UNK
  3. SEPTRA [Suspect]
     Active Substance: SULFAMETHOXAZOLE\TRIMETHOPRIM
     Dosage: UNK
  4. ASA [Suspect]
     Active Substance: ASPIRIN
     Dosage: UNK
  5. LORTAB [LORATADINE] [Suspect]
     Active Substance: LORATADINE
     Dosage: UNK

REACTIONS (1)
  - Drug hypersensitivity [Unknown]
